FAERS Safety Report 4577578-0 (Version None)
Quarter: 2005Q1

REPORT INFORMATION
  Report Type: 
  Country: None (occurrence: None)
  Receive Date: 20050210
  Receipt Date: 19980417
  Transmission Date: 20050727
  Serious: Yes (Hospitalization)
  Sender: FDA-Public Use
  Company Number: AU-MERCK-98043560

PATIENT
  Age: 80 Year
  Sex: Male
  Weight: 84 kg

DRUGS (8)
  1. COZAAR [Suspect]
     Indication: HYPERTENSION
     Route: 048
     Dates: start: 19980402
  2. RAMIPRIL [Concomitant]
     Route: 065
     Dates: end: 19980401
  3. INSULIN [Concomitant]
     Route: 065
     Dates: end: 19980414
  4. AMLODIPINE BENZENESULFONATE [Concomitant]
     Route: 065
  5. DIGOXIN [Concomitant]
     Route: 065
  6. FUROSEMIDE [Concomitant]
     Route: 065
  7. ISOSORBIDE-5-MONONITRATE [Concomitant]
     Route: 065
  8. NITROGLYCERIN [Concomitant]
     Route: 065

REACTIONS (1)
  - HYPOGLYCAEMIA [None]
